FAERS Safety Report 6429284-5 (Version None)
Quarter: 2009Q4

REPORT INFORMATION
  Report Type: 
  Country: None (occurrence: None)
  Receive Date: 20091105
  Receipt Date: 20091030
  Transmission Date: 20100525
  Serious: Yes (Death, Other)
  Sender: FDA-Public Use
  Company Number: PHHY2009JP42466

PATIENT
  Sex: Male
  Weight: 62 kg

DRUGS (10)
  1. VOLTAREN [Suspect]
     Indication: PYREXIA
     Dosage: UNK
     Route: 054
     Dates: start: 20090815, end: 20090817
  2. DOCETAXEL [Suspect]
     Indication: LUNG NEOPLASM MALIGNANT
     Dosage: 50 MG PER DAY
     Dates: start: 20090810, end: 20090810
  3. DOCETAXEL [Suspect]
     Dosage: 50 MG PER DAY
     Dates: start: 20090817, end: 20090817
  4. RANDA [Suspect]
     Indication: LUNG NEOPLASM MALIGNANT
     Dosage: 25 MG PER DAY
     Dates: start: 20090810, end: 20090814
  5. NAUZELIN [Suspect]
     Dosage: UNK
     Route: 054
     Dates: start: 20090815, end: 20090816
  6. NASEA [Concomitant]
     Indication: ANTIEMETIC SUPPORTIVE CARE
     Dosage: 0.3 MG, UNK
     Dates: start: 20090810, end: 20090816
  7. NOVAMIN [Concomitant]
     Indication: ANTIEMETIC SUPPORTIVE CARE
     Dosage: 5 MG, UNK
     Dates: start: 20090810, end: 20090816
  8. LASIX [Concomitant]
     Indication: POLYURIA
     Dosage: 20 MG, UNK
     Dates: start: 20090810, end: 20090814
  9. RINDERON [Concomitant]
     Dosage: 4 MG, UNK
     Dates: start: 20090810, end: 20090816
  10. KYTRIL [Concomitant]
     Dosage: 3 MG, UNK
     Dates: start: 20090815, end: 20090816

REACTIONS (22)
  - ALANINE AMINOTRANSFERASE INCREASED [None]
  - ANAPHYLACTIC REACTION [None]
  - ASPARTATE AMINOTRANSFERASE INCREASED [None]
  - BLOOD CREATININE INCREASED [None]
  - BLOOD LACTATE DEHYDROGENASE INCREASED [None]
  - BLOOD PRESSURE IMMEASURABLE [None]
  - BLOOD UREA INCREASED [None]
  - CARDIAC ARREST [None]
  - CEREBRAL INFARCTION [None]
  - CYANOSIS [None]
  - DYSPNOEA [None]
  - FALL [None]
  - HAEMATOCRIT DECREASED [None]
  - HEART RATE DECREASED [None]
  - HEART RATE INCREASED [None]
  - HEMIPLEGIA [None]
  - HYPOTENSION [None]
  - MEMORY IMPAIRMENT [None]
  - PERIPHERAL COLDNESS [None]
  - RASH [None]
  - RESTLESSNESS [None]
  - UNRESPONSIVE TO STIMULI [None]
